FAERS Safety Report 7483422-4 (Version None)
Quarter: 2011Q2

REPORT INFORMATION
  Report Type: 
  Country: None (occurrence: None)
  Receive Date: 20110517
  Receipt Date: 20110504
  Transmission Date: 20111010
  Serious: Yes (Other)
  Sender: FDA-Public Use
  Company Number: BR-JNJFOC-20110504397

PATIENT
  Age: 27 Year
  Sex: Female
  Weight: 84 kg

DRUGS (2)
  1. ORTHO EVRA [Suspect]
     Indication: CONTRACEPTION
     Route: 062
     Dates: start: 20101101
  2. ORTHO EVRA [Suspect]
     Indication: HORMONE THERAPY
     Route: 062
     Dates: start: 20101101

REACTIONS (5)
  - IRRITABILITY [None]
  - ALOPECIA [None]
  - HYPERTENSIVE CRISIS [None]
  - ANXIETY [None]
  - OFF LABEL USE [None]
